FAERS Safety Report 7051733-2 (Version None)
Quarter: 2010Q4

REPORT INFORMATION
  Report Type: 
  Country: None (occurrence: None)
  Receive Date: 20101019
  Receipt Date: 20101005
  Transmission Date: 20110411
  Serious: Yes (Disabling)
  Sender: FDA-Public Use
  Company Number: PHHY2010US48053

PATIENT
  Sex: Female

DRUGS (4)
  1. CLOZARIL [Suspect]
     Dosage: 450 MG FOR EIGHT YEARS
  2. CLOZARIL [Suspect]
     Dosage: 400 MG AM AND 475MG QHS
  3. ABILIFY [Concomitant]
     Indication: SCHIZOPHRENIA, PARANOID TYPE
     Dosage: 10 MG AM
  4. VALIUM [Concomitant]
     Indication: ANXIETY
     Dosage: 5 MG, PRN

REACTIONS (2)
  - PHOTOSENSITIVITY REACTION [None]
  - SKIN DISCOLOURATION [None]
